FAERS Safety Report 10220974 (Version 2)
Quarter: 2014Q2

REPORT INFORMATION
  Report Type: Spontaneous
  Country: JP (occurrence: JP)
  Receive Date: 20140606
  Receipt Date: 20140618
  Transmission Date: 20141212
  Serious: Yes (Hospitalization)
  Sender: FDA-Public Use
  Company Number: JP-JNJFOC-20140600997

PATIENT
  Age: 27 Year
  Sex: Female

DRUGS (4)
  1. TRAMCET [Suspect]
     Indication: PRODUCT USED FOR UNKNOWN INDICATION
     Dosage: 2 DF ONCE PER DAY
     Route: 048
     Dates: start: 20140512, end: 20140515
  2. PREDNISOLONE [Suspect]
     Indication: PRODUCT USED FOR UNKNOWN INDICATION
     Route: 048
     Dates: start: 20140512, end: 20140515
  3. FAMOTIDINE [Concomitant]
     Route: 048
  4. LOXOMARIN [Concomitant]
     Route: 048
     Dates: start: 201404

REACTIONS (1)
  - Epilepsy [Recovered/Resolved]
